FAERS Safety Report 9481702 (Version 2)
Quarter: 2013Q3

REPORT INFORMATION
  Report Type: Spontaneous
  Country: US (occurrence: US)
  Receive Date: 20130828
  Receipt Date: 20130828
  Transmission Date: 20140515
  Serious: Yes (Hospitalization)
  Sender: FDA-Public Use
  Company Number: US-AMGEN-KDL216272

PATIENT
  Age: 49 Year
  Sex: Female
  Weight: 56.3 kg

DRUGS (4)
  1. ENBREL [Suspect]
     Indication: RHEUMATOID ARTHRITIS
     Dosage: 50 MG, QWK
     Route: 058
     Dates: start: 20070212, end: 20070226
  2. LEFLUNOMIDE [Concomitant]
     Dosage: 20 MG, QD
     Route: 048
     Dates: start: 20070212, end: 20070301
  3. ESTROGENS [Concomitant]
     Dosage: UNK UNK, UNK
     Route: 062
     Dates: start: 20051101
  4. METAXALONE [Concomitant]
     Dosage: UNK UNK, UNK
     Dates: start: 20061020

REACTIONS (6)
  - Brain stem haemorrhage [Not Recovered/Not Resolved]
  - Hemiparesis [Not Recovered/Not Resolved]
  - Hypoaesthesia [Recovering/Resolving]
  - Hypoaesthesia [Recovering/Resolving]
  - Migraine [Recovering/Resolving]
  - Amnesia [Not Recovered/Not Resolved]
